FAERS Safety Report 17196320 (Version 3)
Quarter: 2020Q1

REPORT INFORMATION
  Report Type: Spontaneous
  Country: DE (occurrence: DE)
  Receive Date: 20191224
  Receipt Date: 20200329
  Transmission Date: 20200409
  Serious: Yes (Death, Life-Threatening, Hospitalization, Other)
  Sender: FDA-Public Use
  Company Number: DE-BRISTOL-MYERS SQUIBB COMPANY-BMS-2019-121939

PATIENT

DRUGS (13)
  1. PREDNISOLONE. [Suspect]
     Active Substance: PREDNISOLONE
     Indication: SYSTEMIC LUPUS ERYTHEMATOSUS
     Dosage: 5 MILLIGRAM, QD
     Route: 065
     Dates: start: 1988
  2. FLUVASTATIN [Suspect]
     Active Substance: FLUVASTATIN SODIUM
     Indication: SYSTEMIC LUPUS ERYTHEMATOSUS
     Dosage: UNK
     Route: 065
  3. VALSARTAN. [Suspect]
     Active Substance: VALSARTAN
     Indication: SYSTEMIC LUPUS ERYTHEMATOSUS
     Dosage: UNK
     Route: 065
  4. ELIQUIS [Suspect]
     Active Substance: APIXABAN
     Indication: SYSTEMIC LUPUS ERYTHEMATOSUS
     Dosage: UNK
     Route: 065
  5. BENLYSTA [Suspect]
     Active Substance: BELIMUMAB
     Indication: WHITE BLOOD CELL COUNT DECREASED
     Dosage: 10 MILLIGRAM/KILOGRAM, QWK
     Route: 058
     Dates: start: 201711, end: 201812
  6. BENLYSTA [Suspect]
     Active Substance: BELIMUMAB
     Indication: SYSTEMIC LUPUS ERYTHEMATOSUS
     Dosage: 200 MILLIGRAM/KILOGRAM, QWK
     Route: 058
     Dates: start: 201708, end: 201904
  7. DETRUSITOL [Suspect]
     Active Substance: TOLTERODINE TARTRATE
     Indication: SYSTEMIC LUPUS ERYTHEMATOSUS
     Dosage: UNK
     Route: 065
  8. SEVREDOL [Suspect]
     Active Substance: MORPHINE
     Indication: SYSTEMIC LUPUS ERYTHEMATOSUS
     Dosage: UNK
     Route: 065
  9. AZATHIOPRINE. [Suspect]
     Active Substance: AZATHIOPRINE
     Indication: WHITE BLOOD CELL COUNT DECREASED
     Dosage: 50 MILLIGRAM
     Route: 065
     Dates: start: 20100419, end: 201907
  10. ACICLOVIR [Suspect]
     Active Substance: ACYCLOVIR
     Indication: SYSTEMIC LUPUS ERYTHEMATOSUS
     Dosage: UNK
     Route: 065
  11. MOLSIDOMIN [Suspect]
     Active Substance: MOLSIDOMINE
     Indication: SYSTEMIC LUPUS ERYTHEMATOSUS
     Dosage: UNK
     Route: 065
  12. LEVOTHYROXINE SODIUM. [Suspect]
     Active Substance: LEVOTHYROXINE SODIUM
     Indication: SYSTEMIC LUPUS ERYTHEMATOSUS
     Dosage: UNK
     Route: 065
  13. PENTACARINAT [Suspect]
     Active Substance: PENTAMIDINE ISETHIONATE
     Indication: SYSTEMIC LUPUS ERYTHEMATOSUS
     Dosage: UNK
     Route: 055

REACTIONS (4)
  - Peritonitis [Fatal]
  - Lymphopenia [Unknown]
  - Intentional product use issue [Unknown]
  - Leukopenia [Unknown]
